FAERS Safety Report 22254723 (Version 1)
Quarter: 2023Q2

REPORT INFORMATION
  Report Type: Spontaneous
  Country: US (occurrence: None)
  Receive Date: 20230425
  Receipt Date: 20230425
  Transmission Date: 20230721
  Serious: Yes (Hospitalization)
  Sender: FDA-Public Use
  Company Number: None

PATIENT
  Age: 72 Year
  Sex: Female
  Weight: 80 kg

DRUGS (9)
  1. XELODA [Suspect]
     Active Substance: CAPECITABINE
     Indication: Breast cancer female
     Dosage: 1300 MG BIDX14D THEN OFF7D  ORAL?
     Route: 048
     Dates: start: 20221006, end: 20230410
  2. XELODA [Suspect]
     Active Substance: CAPECITABINE
     Dosage: OTHER FREQUENCY : BIDX14D THEN OFF7D?
     Route: 048
     Dates: start: 20221006, end: 20230410
  3. VITAMIN D2 50,000 IY QWK [Concomitant]
  4. HCTZ 25MG QD [Concomitant]
  5. LATANOPROST 0.005% 1 GTT QPM [Concomitant]
  6. LISINOPRIL 40MG QD [Concomitant]
  7. PAROXETINE 20MG QD [Concomitant]
  8. PROLIA 60MG/ML Q 6MO [Concomitant]
  9. ZYRTEC 10MG QD // BID [Concomitant]

REACTIONS (8)
  - Swelling face [None]
  - Oesophageal mucosal blister [None]
  - Pharyngeal swelling [None]
  - Sensation of foreign body [None]
  - Tachycardia [None]
  - Therapy interrupted [None]
  - Therapy change [None]
  - Angioedema [None]

NARRATIVE: CASE EVENT DATE: 20230410
